FAERS Safety Report 8120396-7 (Version None)
Quarter: 2012Q1

REPORT INFORMATION
  Report Type: 
  Country: None (occurrence: None)
  Receive Date: 20120207
  Receipt Date: 20120131
  Transmission Date: 20120608
  Serious: Yes (Other)
  Sender: FDA-Public Use
  Company Number: JP-GLAXOSMITHKLINE-B0779170A

PATIENT
  Age: 8 Year
  Sex: Male

DRUGS (2)
  1. CEFDINIR [Concomitant]
     Route: 048
     Dates: start: 20120125
  2. RELENZA [Suspect]
     Indication: INFLUENZA
     Dosage: 20MG PER DAY
     Route: 055
     Dates: start: 20120127

REACTIONS (2)
  - HALLUCINATION [None]
  - SCREAMING [None]
